FAERS Safety Report 15948122 (Version 1)
Quarter: 2019Q1

REPORT INFORMATION
  Report Type: Spontaneous
  Country: US (occurrence: US)
  Receive Date: 20190211
  Receipt Date: 20190211
  Transmission Date: 20190417
  Serious: Yes (Other)
  Sender: FDA-Public Use
  Company Number: US-BAYER-2019-028598

PATIENT
  Sex: Female

DRUGS (1)
  1. MIRENA [Suspect]
     Active Substance: LEVONORGESTREL
     Dosage: 20 MCG/24HR, CONT
     Route: 015

REACTIONS (11)
  - Tinnitus [None]
  - Dizziness [None]
  - Diplopia [None]
  - Vision blurred [None]
  - Photophobia [None]
  - Depression [None]
  - Migraine [None]
  - Fatigue [None]
  - Nausea [None]
  - Idiopathic intracranial hypertension [None]
  - Amnesia [None]
